FAERS Safety Report 6210749-6 (Version None)
Quarter: 2009Q2

REPORT INFORMATION
  Report Type: 
  Country: None (occurrence: None)
  Receive Date: 20090528
  Receipt Date: 20090528
  Transmission Date: 20091009
  Serious: Yes (Hospitalization)
  Sender: FDA-Public Use
  Company Number: None

PATIENT
  Sex: Male
  Weight: 69.2 kg

DRUGS (1)
  1. TPN [Suspect]
     Indication: HISTIOCYTOSIS
     Dosage: Q 24 HOURS IV
     Route: 042
     Dates: start: 20090326, end: 20090414

REACTIONS (7)
  - CONNECTIVE TISSUE DISORDER [None]
  - HISTIOCYTOSIS [None]
  - LEUKOPENIA [None]
  - LIVER FUNCTION TEST ABNORMAL [None]
  - RENAL FAILURE ACUTE [None]
  - SPLENOMEGALY [None]
  - VIRAL INFECTION [None]
